FAERS Safety Report 13902026 (Version 2)
Quarter: 2020Q1

REPORT INFORMATION
  Report Type: Spontaneous
  Country: US (occurrence: US)
  Receive Date: 20170824
  Receipt Date: 20200106
  Transmission Date: 20200409
  Serious: Yes (Death, Hospitalization, Other)
  Sender: FDA-Public Use
  Company Number: US-PFIZER INC-2017364765

PATIENT
  Age: 62 Year
  Sex: Male

DRUGS (10)
  1. CIALIS [Suspect]
     Active Substance: TADALAFIL
     Dosage: 20 MG, UNK
     Route: 048
     Dates: start: 20071104, end: 20111211
  2. CIALIS [Suspect]
     Active Substance: TADALAFIL
     Dosage: 20 MG, UNK
     Route: 048
     Dates: start: 20150825, end: 20150924
  3. VIAGRA [Suspect]
     Active Substance: SILDENAFIL CITRATE
     Indication: ERECTILE DYSFUNCTION
     Dosage: 25 MG, UNK
     Route: 048
     Dates: start: 20150706, end: 20150805
  4. CIALIS [Suspect]
     Active Substance: TADALAFIL
     Dosage: UNK (12 SAMPLES)
     Route: 048
     Dates: start: 20080923
  5. CIALIS [Suspect]
     Active Substance: TADALAFIL
     Dosage: UNK (12 SAMPLES)
     Route: 048
     Dates: start: 20100504
  6. LEVITRA [Concomitant]
     Active Substance: VARDENAFIL HYDROCHLORIDE
     Indication: ERECTILE DYSFUNCTION
     Dosage: 10 MG, UNK
     Dates: start: 20070628, end: 2007
  7. CIALIS [Suspect]
     Active Substance: TADALAFIL
     Indication: ERECTILE DYSFUNCTION
     Dosage: UNK
     Route: 048
     Dates: start: 200706, end: 201509
  8. CIALIS [Suspect]
     Active Substance: TADALAFIL
     Dosage: UNK (30 SAMPLES)
     Route: 048
     Dates: start: 20130514
  9. CIALIS [Suspect]
     Active Substance: TADALAFIL
     Dosage: 5 MG, UNK
     Route: 048
     Dates: start: 20140219, end: 20150101
  10. CIALIS [Suspect]
     Active Substance: TADALAFIL
     Dosage: 5 MG, UNK
     Route: 048
     Dates: start: 20120321, end: 20130613

REACTIONS (4)
  - Malignant melanoma [Unknown]
  - Metastatic malignant melanoma [Fatal]
  - Depression [Unknown]
  - Anxiety [Unknown]

NARRATIVE: CASE EVENT DATE: 20150923
